FAERS Safety Report 5201370-7 (Version None)
Quarter: 2006Q4

REPORT INFORMATION
  Report Type: 
  Country: None (occurrence: None)
  Receive Date: 20061016
  Receipt Date: 20060407
  Transmission Date: 20070319
  Serious: No
  Sender: FDA-Public Use
  Company Number: 2005112873

PATIENT
  Sex: Female
  Weight: 65.7716 kg

DRUGS (14)
  1. NEURONTIN [Suspect]
     Indication: FIBROMYALGIA
     Dosage: 600 MG (300 MG, 2 IN 1 D), ORAL
     Route: 048
  2. NEURONTIN [Suspect]
     Indication: ILL-DEFINED DISORDER
     Dosage: 600 MG (300 MG, 2 IN 1 D), ORAL
     Route: 048
  3. NEURONTIN [Suspect]
     Indication: SYSTEMIC LUPUS ERYTHEMATOSUS
     Dosage: 600 MG (300 MG, 2 IN 1 D), ORAL
     Route: 048
  4. GABAPENTIN [Suspect]
     Indication: ILL-DEFINED DISORDER
  5. THYROID TAB [Concomitant]
  6. VERAPAMIL [Concomitant]
  7. ESTROGENIC SUBSTANCE [Concomitant]
  8. ZANTAC [Concomitant]
  9. BENICAR [Concomitant]
  10. PROVERA [Concomitant]
  11. CLIMARA [Concomitant]
  12. TESTRED (METHYLTESTOSTERONE) [Concomitant]
  13. PROGESTERONE [Concomitant]
  14. ALL OTHER THERAPEUTIC PRODUCTS [Concomitant]

REACTIONS (14)
  - ABDOMINAL PAIN UPPER [None]
  - APTYALISM [None]
  - CONVULSION [None]
  - DRUG INEFFECTIVE [None]
  - DRY EYE [None]
  - DRY MOUTH [None]
  - DYSPHAGIA [None]
  - FACIAL NERVE DISORDER [None]
  - FATIGUE [None]
  - HYPERTENSION [None]
  - INSOMNIA [None]
  - NASAL DRYNESS [None]
  - PAIN [None]
  - VISION BLURRED [None]
